FAERS Safety Report 18773083 (Version 1)
Quarter: 2021Q1

REPORT INFORMATION
  Report Type: Spontaneous
  Country: US (occurrence: US)
  Receive Date: 20210121
  Receipt Date: 20210121
  Transmission Date: 20210419
  Serious: Yes (Other)
  Sender: FDA-Public Use
  Company Number: None

PATIENT
  Age: 26 Year
  Sex: Female
  Weight: 70.2 kg

DRUGS (2)
  1. ELURYNG [Suspect]
     Active Substance: ETHINYL ESTRADIOL\ETONOGESTREL
     Indication: PAIN
     Dosage: ?          QUANTITY:1 1;OTHER FREQUENCY:3W IN 1W OUT;?
     Route: 067
     Dates: start: 20201223
  2. ELURYNG [Suspect]
     Active Substance: ETHINYL ESTRADIOL\ETONOGESTREL
     Indication: CONTRACEPTION
     Dosage: ?          QUANTITY:1 1;OTHER FREQUENCY:3W IN 1W OUT;?
     Route: 067
     Dates: start: 20201223

REACTIONS (8)
  - Migraine [None]
  - Product colour issue [None]
  - Panic attack [None]
  - Product substitution issue [None]
  - Insomnia [None]
  - Dysmenorrhoea [None]
  - Headache [None]
  - Anxiety [None]

NARRATIVE: CASE EVENT DATE: 20210105
